FAERS Safety Report 4478495-7 (Version None)
Quarter: 2004Q4

REPORT INFORMATION
  Report Type: 
  Country: None (occurrence: None)
  Receive Date: 20041018
  Receipt Date: 20041018
  Transmission Date: 20050328
  Serious: Yes (Life-Threatening, Hospitalization)
  Sender: FDA-Public Use
  Company Number: None

PATIENT
  Age: 46 Year
  Sex: Female
  Weight: 86.1834 kg

DRUGS (6)
  1. LYMPHAZURIN [Suspect]
     Indication: BREAST CANCER
     Dosage: 5ML ONCE INTRALYMP
     Route: 027
     Dates: start: 20040927, end: 20040928
  2. PROPOFOL [Concomitant]
  3. KETAMINE HCL [Concomitant]
  4. VERSED [Concomitant]
  5. FENTANYL [Concomitant]
  6. MIVACURIUM [Concomitant]

REACTIONS (1)
  - ANAPHYLACTOID REACTION [None]
